FAERS Safety Report 4888863-7 (Version None)
Quarter: 2005Q4

REPORT INFORMATION
  Report Type: 
  Country: None (occurrence: None)
  Receive Date: 20051216
  Receipt Date: 20050927
  Transmission Date: 20060501
  Serious: No
  Sender: FDA-Public Use
  Company Number: USA0507102655

PATIENT
  Age: 66 Year
  Sex: Male

DRUGS (5)
  1. CIALIS [Suspect]
     Indication: ERECTILE DYSFUNCTION
     Dosage: 20 MG AS NEEDED
     Dates: start: 20040101
  2. ASCORBIC ACID [Concomitant]
  3. COQ10 (UBIDECARENONE) [Concomitant]
  4. MULTIVITAMIN AND MINERAL SUPPLEMENT [Concomitant]
  5. VITAMIN E (HERBAL OIL NOS) [Concomitant]

REACTIONS (4)
  - CONJUNCTIVITIS BACTERIAL [None]
  - EYE IRRITATION [None]
  - PALPITATIONS [None]
  - THERAPEUTIC RESPONSE DECREASED [None]
